FAERS Safety Report 13948352 (Version 1)
Quarter: 2017Q3

REPORT INFORMATION
  Report Type: Spontaneous
  Country: US (occurrence: US)
  Receive Date: 20170908
  Receipt Date: 20170908
  Transmission Date: 20171128
  Serious: Yes (Other)
  Sender: FDA-Public Use
  Company Number: US-SA-2017SA163617

PATIENT
  Age: 77 Year
  Sex: Female

DRUGS (1)
  1. CEREZYME [Suspect]
     Active Substance: IMIGLUCERASE
     Indication: GAUCHER^S DISEASE
     Dosage: TOTAL DOSE IS 5600 UNITS DOSE:70 UNIT(S)/KILOGRAM BODYWEIGHT
     Route: 041
     Dates: start: 201511

REACTIONS (1)
  - Cardiac failure [Unknown]
